FAERS Safety Report 7558366-X (Version None)
Quarter: 2011Q2

REPORT INFORMATION
  Report Type: 
  Country: None (occurrence: None)
  Receive Date: 20110620
  Receipt Date: 20110608
  Transmission Date: 20111010
  Serious: Yes (Other)
  Sender: FDA-Public Use
  Company Number: PHHY2011BR22572

PATIENT
  Sex: Male

DRUGS (3)
  1. AMARYL FLEX [Concomitant]
     Indication: DIABETES MELLITUS
     Dosage: 3 TABLETS PER DAY
     Route: 048
  2. LIPLESS [Concomitant]
  3. DIOVAN [Suspect]
     Indication: HYPERTENSION
     Dosage: 1 DF, QD
     Route: 048

REACTIONS (7)
  - FEELING ABNORMAL [None]
  - PAIN [None]
  - FATIGUE [None]
  - NAUSEA [None]
  - PLATELET COUNT DECREASED [None]
  - DENGUE FEVER [None]
  - HYPERTENSION [None]
